FAERS Safety Report 5398975-X (Version None)
Quarter: 2007Q3

REPORT INFORMATION
  Report Type: 
  Country: None (occurrence: None)
  Receive Date: 20070724
  Receipt Date: 20070724
  Transmission Date: 20080115
  Serious: Yes (Hospitalization)
  Sender: FDA-Public Use
  Company Number: None

PATIENT
  Sex: Male
  Weight: 108 kg

DRUGS (3)
  1. CYTARABINE [Suspect]
     Dosage: 32960
     Dates: end: 20070624
  2. ETOPOSIDE [Suspect]
     Dosage: 3480 MG
     Dates: end: 20070624
  3. RITUXIMAB (MOAB C2B8 ANTI CD20, CHIMERIC) [Suspect]
     Dosage: 1540 MG
     Dates: end: 20070703

REACTIONS (1)
  - FEBRILE NEUTROPENIA [None]
